FAERS Safety Report 17894704 (Version 1)
Quarter: 2020Q2

REPORT INFORMATION
  Report Type: Spontaneous
  Country: US (occurrence: US)
  Receive Date: 20200615
  Receipt Date: 20200615
  Transmission Date: 20200714
  Serious: Yes (Other)
  Sender: FDA-Public Use
  Company Number: US-LUPIN PHARMACEUTICALS INC.-2020-02783

PATIENT
  Sex: Male

DRUGS (2)
  1. LEVOTHYROXINE SODIUM TABLETS [Suspect]
     Active Substance: LEVOTHYROXINE SODIUM
     Indication: PRODUCT USED FOR UNKNOWN INDICATION
     Dosage: 88 MICROGRAM, QD
     Route: 065
  2. LEVOTHYROXINE SODIUM TABLETS [Suspect]
     Active Substance: LEVOTHYROXINE SODIUM
     Dosage: 100 MICROGRAM, QD
     Route: 065

REACTIONS (1)
  - Coeliac disease [Unknown]
